FAERS Safety Report 12914054 (Version 1)
Quarter: 2016Q4

REPORT INFORMATION
  Report Type: Spontaneous
  Country: GB (occurrence: GB)
  Receive Date: 20161105
  Receipt Date: 20161105
  Transmission Date: 20170207
  Serious: Yes (Hospitalization)
  Sender: FDA-Public Use
  Company Number: GB-ACCORD-045309

PATIENT
  Age: 83 Year
  Sex: Female

DRUGS (7)
  1. QUETIAPINE. [Suspect]
     Active Substance: QUETIAPINE
     Indication: PRODUCT USED FOR UNKNOWN INDICATION
     Dosage: AT NIGHT.
     Route: 048
  2. CODEINE [Concomitant]
     Active Substance: CODEINE
     Dosage: 3  TO 4 TIMES A DAY
     Route: 048
  3. PARACETAMOL [Concomitant]
     Active Substance: ACETAMINOPHEN
     Dosage: 4 TIMES A DAY
     Route: 048
  4. FUROSEMIDE. [Concomitant]
     Active Substance: FUROSEMIDE
     Route: 048
  5. LEVOTHYROXINE. [Concomitant]
     Active Substance: LEVOTHYROXINE
     Route: 048
  6. ANASTROZOLE. [Concomitant]
     Active Substance: ANASTROZOLE
     Route: 048
  7. HYPROMELLOSE/HYPROMELLOSE PHTHALATE [Concomitant]
     Route: 031

REACTIONS (1)
  - Pancytopenia [Recovered/Resolved]
